FAERS Safety Report 14760568 (Version 1)
Quarter: 2018Q2

REPORT INFORMATION
  Report Type: Report from Study
  Country: SE (occurrence: SE)
  Receive Date: 20180414
  Receipt Date: 20180414
  Transmission Date: 20180711
  Serious: Yes (Other)
  Sender: FDA-Public Use
  Company Number: SE-ROCHE-1737767

PATIENT
  Age: 60 Year
  Sex: Female

DRUGS (3)
  1. PEG-INTERFERON ALFA 2A [Suspect]
     Active Substance: PEGINTERFERON ALFA-2A
     Indication: CHRONIC HEPATITIS C
     Dosage: WEEK
     Route: 058
     Dates: start: 20120510, end: 20120706
  2. BOCEPREVIR [Suspect]
     Active Substance: BOCEPREVIR
     Indication: CHRONIC HEPATITIS C
     Dosage: DAY
     Route: 048
     Dates: start: 20120621, end: 20120708
  3. RIBAVIRIN. [Suspect]
     Active Substance: RIBAVIRIN
     Indication: CHRONIC HEPATITIS C
     Dosage: DAY
     Route: 048
     Dates: start: 20120510, end: 20120708

REACTIONS (9)
  - Headache [Recovered/Resolved]
  - Intervertebral discitis [Recovered/Resolved with Sequelae]
  - Fatigue [Recovered/Resolved]
  - Meningitis [Recovered/Resolved]
  - Diarrhoea [Recovered/Resolved]
  - Nausea [Recovered/Resolved]
  - Irritability [Recovered/Resolved]
  - Extradural abscess [Recovered/Resolved]
  - Muscle spasms [Recovered/Resolved]

NARRATIVE: CASE EVENT DATE: 20120524
